FAERS Safety Report 22109724 (Version 1)
Quarter: 2023Q1

REPORT INFORMATION
  Report Type: Report from Study
  Country: CL (occurrence: CL)
  Receive Date: 20230317
  Receipt Date: 20230317
  Transmission Date: 20230418
  Serious: Yes (Other)
  Sender: FDA-Public Use
  Company Number: CL-002147023-NVSC2023CL058335

PATIENT
  Age: 47 Year
  Sex: Male

DRUGS (5)
  1. COSENTYX [Suspect]
     Active Substance: SECUKINUMAB
     Indication: Psoriatic arthropathy
     Dosage: 150 MG, QMO
     Route: 058
     Dates: start: 20220207
  2. COSENTYX [Suspect]
     Active Substance: SECUKINUMAB
     Dosage: 150 MG, QMO
     Route: 058
     Dates: start: 20221107
  3. COSENTYX [Suspect]
     Active Substance: SECUKINUMAB
     Dosage: UNK (5 LOADING DOSES FOR 5 WEEKS)
     Route: 065
     Dates: start: 20221205
  4. COSENTYX [Suspect]
     Active Substance: SECUKINUMAB
     Dosage: 150 MG
     Route: 065
     Dates: start: 20230205
  5. COSENTYX [Suspect]
     Active Substance: SECUKINUMAB
     Dosage: 150 MG
     Route: 065
     Dates: start: 20230305

REACTIONS (9)
  - Choking [Unknown]
  - Nasopharyngitis [Unknown]
  - Cough [Unknown]
  - Tonsillar inflammation [Unknown]
  - Dysphonia [Unknown]
  - Dyspnoea [Unknown]
  - Tachycardia [Unknown]
  - Visual impairment [Unknown]
  - Expired product administered [Unknown]
